FAERS Safety Report 5109894-8 (Version None)
Quarter: 2006Q3

REPORT INFORMATION
  Report Type: 
  Country: None (occurrence: None)
  Receive Date: 20060921
  Receipt Date: 20060822
  Transmission Date: 20061208
  Serious: Yes (Hospitalization)
  Sender: FDA-Public Use
  Company Number: JP-RB-3768-2006

PATIENT
  Sex: Female

DRUGS (15)
  1. BUPRENORPHINE HCL [Suspect]
     Indication: PAIN
     Route: 030
     Dates: start: 20060810, end: 20060810
  2. TACROLIMUS [Concomitant]
     Indication: MYASTHENIA GRAVIS
     Route: 048
     Dates: start: 20031101
  3. PREDNISOLONE [Concomitant]
     Indication: MYASTHENIA GRAVIS
     Route: 048
     Dates: start: 20031101
  4. WARFARIN SODIUM [Concomitant]
     Indication: MYASTHENIA GRAVIS
     Route: 048
     Dates: start: 20031101
  5. FUROSEMIDE [Concomitant]
     Indication: MYASTHENIA GRAVIS
     Route: 048
     Dates: start: 20031101
  6. CETRAXATE HYDROCHLORIDE [Concomitant]
     Indication: MYASTHENIA GRAVIS
     Route: 048
     Dates: start: 20031101
  7. MAGNESIUM OXIDE [Concomitant]
     Indication: MYASTHENIA GRAVIS
     Route: 048
     Dates: start: 20031101
  8. CAMOSTAT MESILATE [Concomitant]
     Indication: MYASTHENIA GRAVIS
     Route: 048
     Dates: start: 20031101
  9. SENNA [Concomitant]
     Indication: MYASTHENIA GRAVIS
     Route: 048
     Dates: start: 20031101
  10. CALCITRIOL [Concomitant]
     Indication: MYASTHENIA GRAVIS
     Route: 048
     Dates: start: 20031101
  11. AMBENONIUM CHLORIDE [Concomitant]
     Route: 048
     Dates: start: 20031101
  12. ROXATIDINE ACETATE HCL [Concomitant]
     Indication: MYASTHENIA GRAVIS
     Route: 048
     Dates: start: 20031101
  13. CILOSTAZOL [Concomitant]
     Indication: MYASTHENIA GRAVIS
     Route: 048
     Dates: start: 20031101
  14. ALENDRONATE SODIUM [Concomitant]
     Route: 048
     Dates: start: 20031101
  15. FAMOTIDINE [Concomitant]
     Indication: MYASTHENIA GRAVIS
     Route: 048
     Dates: start: 20031101

REACTIONS (6)
  - DYSARTHRIA [None]
  - DYSPNOEA [None]
  - FEELING ABNORMAL [None]
  - HEADACHE [None]
  - NAUSEA [None]
  - PRURITUS GENERALISED [None]
